FAERS Safety Report 4395041-7 (Version None)
Quarter: 2004Q3

REPORT INFORMATION
  Report Type: 
  Country: None (occurrence: None)
  Receive Date: 20040707
  Receipt Date: 20040624
  Transmission Date: 20050211
  Serious: Yes (Other)
  Sender: FDA-Public Use
  Company Number: 2004043442

PATIENT
  Sex: Female

DRUGS (3)
  1. GEODON [Suspect]
     Indication: DEPRESSION
     Dates: start: 20040101
  2. LAMOTRIGINE [Concomitant]
  3. OXCARBAZEPINE (OXCARBAZEPINE) [Concomitant]

REACTIONS (3)
  - DISEASE RECURRENCE [None]
  - FEELING OF DESPAIR [None]
  - SUICIDAL IDEATION [None]
